FAERS Safety Report 4810864-5 (Version None)
Quarter: 2005Q4

REPORT INFORMATION
  Report Type: 
  Country: None (occurrence: None)
  Receive Date: 20051027
  Receipt Date: 20050824
  Transmission Date: 20060501
  Serious: No
  Sender: FDA-Public Use
  Company Number: US-GLAXOSMITHKLINE-A0571658A

PATIENT
  Age: 9 Year
  Sex: Male
  Weight: 44 kg

DRUGS (6)
  1. LEXIVA [Suspect]
     Indication: HIV INFECTION
     Dosage: 700MG THREE TIMES PER DAY
     Route: 048
     Dates: start: 20050818
  2. RITONAVIR [Suspect]
     Indication: HIV INFECTION
     Dosage: 100MG TWICE PER DAY
     Route: 065
     Dates: start: 20050818
  3. TRIZIVIR [Suspect]
     Indication: HIV INFECTION
     Route: 048
     Dates: start: 20050818
  4. VIRACEPT [Suspect]
     Indication: HIV INFECTION
     Route: 065
     Dates: end: 20050824
  5. BUSPIRONE HCL [Concomitant]
  6. ADDERALL 10 [Concomitant]
     Route: 065

REACTIONS (2)
  - DIARRHOEA [None]
  - VOMITING [None]
